FAERS Safety Report 8307394-5 (Version None)
Quarter: 2012Q2

REPORT INFORMATION
  Report Type: 
  Country: None (occurrence: None)
  Receive Date: 20120424
  Receipt Date: 20120416
  Transmission Date: 20120825
  Serious: Yes (Other)
  Sender: FDA-Public Use
  Company Number: IT-PFIZER INC-2012097482

PATIENT
  Sex: Female

DRUGS (3)
  1. TILADE [Suspect]
     Indication: COUGH
     Dosage: UNK
     Route: 055
  2. BETAMETHASONE SODIUM PHOSPHATE [Concomitant]
     Dosage: UNK
  3. RINOGUTT [Concomitant]
     Dosage: UNK

REACTIONS (2)
  - INCORRECT DOSE ADMINISTERED [None]
  - HYPOACUSIS [None]
